FAERS Safety Report 5916625-8 (Version None)
Quarter: 2008Q4

REPORT INFORMATION
  Report Type: 
  Country: None (occurrence: None)
  Receive Date: 20081013
  Receipt Date: 20081003
  Transmission Date: 20090506
  Serious: Yes (Death)
  Sender: FDA-Public Use
  Company Number: US-NOVOPROD-275980

PATIENT
  Age: 5 Year
  Sex: Female

DRUGS (8)
  1. NORDITROPIN NORDIFLEX [Suspect]
     Indication: FOETAL GROWTH RETARDATION
     Dosage: .5 MG, QD AT BEDTIME
     Route: 058
     Dates: start: 20070829, end: 20080501
  2. NORDITROPIN NORDIFLEX [Suspect]
     Indication: GROWTH RETARDATION
  3. SYNTHROID [Concomitant]
     Indication: HYPOTHYROIDISM
  4. TOPAMAX [Concomitant]
     Indication: CONVULSION
  5. PRILOSEC [Concomitant]
     Indication: GASTROOESOPHAGEAL REFLUX DISEASE
  6. XOPENEX [Concomitant]
     Indication: BRONCHOSPASM
  7. PULMICORT-100 [Concomitant]
     Indication: ASTHMA
  8. SINGULAIR [Concomitant]
     Indication: HYPERSENSITIVITY

REACTIONS (1)
  - RESPIRATORY DISTRESS [None]
